FAERS Safety Report 19439545 (Version 2)
Quarter: 2021Q2

REPORT INFORMATION
  Report Type: Report from Study
  Country: None (occurrence: US)
  Receive Date: 20210618
  Receipt Date: 20210622
  Transmission Date: 20210717
  Serious: Yes (Other)
  Sender: FDA-Public Use
  Company Number: US-ABBVIE-21K-163-3948456-00

PATIENT
  Age: 40 Year
  Sex: Female

DRUGS (1)
  1. HUMIRA [Suspect]
     Active Substance: ADALIMUMAB
     Indication: RHEUMATOID ARTHRITIS
     Route: 058

REACTIONS (6)
  - Thyroid mass [Not Recovered/Not Resolved]
  - Head injury [Unknown]
  - Road traffic accident [Unknown]
  - Osteoarthritis [Unknown]
  - Inflammatory marker increased [Not Recovered/Not Resolved]
  - Hand fracture [Not Recovered/Not Resolved]

NARRATIVE: CASE EVENT DATE: 202105
